FAERS Safety Report 20221672 (Version 1)
Quarter: 2021Q4

REPORT INFORMATION
  Report Type: Spontaneous
  Country: US (occurrence: US)
  Receive Date: 20211223
  Receipt Date: 20211223
  Transmission Date: 20220303
  Serious: Yes (Death, Hospitalization, Other)
  Sender: FDA-Public Use
  Company Number: US-ORGANON-O2112USA002060

PATIENT
  Age: 39 Year
  Sex: Male

DRUGS (20)
  1. COZAAR [Suspect]
     Active Substance: LOSARTAN POTASSIUM
     Dosage: UNK
     Route: 048
  2. SODIUM SALICYLATE [Suspect]
     Active Substance: SODIUM SALICYLATE
     Dosage: UNK
     Route: 048
  3. SODIUM SALICYLATE [Suspect]
     Active Substance: SODIUM SALICYLATE
     Dosage: UNK
     Route: 048
  4. SODIUM SALICYLATE [Suspect]
     Active Substance: SODIUM SALICYLATE
     Dosage: UNK
     Route: 048
  5. SODIUM SALICYLATE [Suspect]
     Active Substance: SODIUM SALICYLATE
     Dosage: UNK
     Route: 048
  6. SODIUM SALICYLATE [Suspect]
     Active Substance: SODIUM SALICYLATE
     Dosage: UNK
     Route: 048
  7. SODIUM SALICYLATE [Suspect]
     Active Substance: SODIUM SALICYLATE
     Dosage: UNK
     Route: 048
  8. SODIUM SALICYLATE [Suspect]
     Active Substance: SODIUM SALICYLATE
     Dosage: UNK
     Route: 048
  9. SODIUM SALICYLATE [Suspect]
     Active Substance: SODIUM SALICYLATE
     Dosage: UNK
     Route: 048
  10. SODIUM SALICYLATE [Suspect]
     Active Substance: SODIUM SALICYLATE
     Dosage: UNK
     Route: 048
  11. SODIUM SALICYLATE [Suspect]
     Active Substance: SODIUM SALICYLATE
     Dosage: UNK
     Route: 048
  12. SODIUM SALICYLATE [Suspect]
     Active Substance: SODIUM SALICYLATE
     Dosage: UNK
     Route: 048
  13. SODIUM SALICYLATE [Suspect]
     Active Substance: SODIUM SALICYLATE
     Dosage: UNK
     Route: 048
  14. AMLODIPINE [Suspect]
     Active Substance: AMLODIPINE BESYLATE
     Dosage: UNK
     Route: 048
  15. METOPROLOL [Suspect]
     Active Substance: METOPROLOL
     Dosage: UNK
     Route: 048
  16. TOPIRAMATE [Suspect]
     Active Substance: TOPIRAMATE
     Dosage: UNK
     Route: 048
  17. LAMOTRIGINE [Suspect]
     Active Substance: LAMOTRIGINE
     Dosage: UNK
     Route: 048
  18. METFORMIN [Suspect]
     Active Substance: METFORMIN HYDROCHLORIDE
     Dosage: UNK
     Route: 048
  19. CLONAZEPAM [Suspect]
     Active Substance: CLONAZEPAM
     Dosage: UNK
     Route: 048
  20. GABAPENTIN [Suspect]
     Active Substance: GABAPENTIN
     Dosage: UNK
     Route: 048

REACTIONS (1)
  - Suspected suicide [Fatal]
